FAERS Safety Report 14100862 (Version 1)
Quarter: 2017Q4

REPORT INFORMATION
  Report Type: Spontaneous
  Country: US (occurrence: None)
  Receive Date: 20171017
  Receipt Date: 20171017
  Transmission Date: 20180321
  Serious: No
  Sender: FDA-Public Use
  Company Number: None

PATIENT
  Age: 93 Year
  Sex: Female
  Weight: 79.38 kg

DRUGS (9)
  1. VITAMIN D3 [Concomitant]
     Active Substance: CHOLECALCIFEROL
  2. PREDNISONE 10 MG [Suspect]
     Active Substance: PREDNISONE
     Indication: PAIN IN EXTREMITY
     Route: 061
     Dates: start: 20170526, end: 20171012
  3. NITROSTAT [Concomitant]
     Active Substance: NITROGLYCERIN
  4. ADVIL [Concomitant]
     Active Substance: IBUPROFEN
  5. TRAMADOL HCL [Concomitant]
     Active Substance: TRAMADOL HYDROCHLORIDE
  6. PREDNISONE 10 MG [Suspect]
     Active Substance: PREDNISONE
     Indication: SCIATICA
     Route: 061
     Dates: start: 20170526, end: 20171012
  7. DICLOFENAC SOD [Suspect]
     Active Substance: DICLOFENAC SODIUM
  8. DICLOFENAC SODIUM. [Suspect]
     Active Substance: DICLOFENAC SODIUM
  9. TYLENOL [Concomitant]
     Active Substance: ACETAMINOPHEN

REACTIONS (3)
  - Condition aggravated [None]
  - Pain in extremity [None]
  - Spinal column stenosis [None]

NARRATIVE: CASE EVENT DATE: 201703
